FAERS Safety Report 13650608 (Version 1)
Quarter: 2017Q2

REPORT INFORMATION
  Report Type: Report from Study
  Country: RU (occurrence: RU)
  Receive Date: 20170614
  Receipt Date: 20170614
  Transmission Date: 20170830
  Serious: Yes (Other)
  Sender: FDA-Public Use
  Company Number: RU-TEVA-775702ISR

PATIENT
  Age: 4 Year
  Sex: Female

DRUGS (3)
  1. LONQUEX [Suspect]
     Active Substance: LIPEGFILGRASTIM
     Indication: PROPHYLAXIS
     Dosage: 1 DAY 1 CYCLE. LAST DOSE PRIOR TO SAE: 24-FEB-2017
     Route: 058
     Dates: start: 20161219
  2. ETOPOSIDE-TEVA [Suspect]
     Active Substance: ETOPOSIDE
     Indication: EWING^S SARCOMA
     Dosage: DAYS 1-3
     Route: 042
     Dates: start: 20161216
  3. DOXORUBICIN-TEVA [Suspect]
     Active Substance: DOXORUBICIN
     Indication: EWING^S SARCOMA
     Dosage: DAYS 1-3
     Route: 042
     Dates: start: 20161216

REACTIONS (2)
  - Thrombocytopenia [Recovered/Resolved with Sequelae]
  - Lymphopenia [Recovered/Resolved with Sequelae]

NARRATIVE: CASE EVENT DATE: 20170227
